FAERS Safety Report 19349941 (Version 1)
Quarter: 2021Q2

REPORT INFORMATION
  Report Type: Spontaneous
  Country: US (occurrence: US)
  Receive Date: 20210529
  Receipt Date: 20210529
  Transmission Date: 20210717
  Serious: Yes (Hospitalization)
  Sender: FDA-Public Use
  Company Number: None

PATIENT
  Age: 42 Year
  Sex: Female
  Weight: 107.9 kg

DRUGS (3)
  1. TAXOTERE [Suspect]
     Active Substance: DOCETAXEL
     Dates: end: 20210419
  2. HERCEPTIN [Concomitant]
     Active Substance: TRASTUZUMAB
     Dates: end: 20210419
  3. PERTUZUMAB. [Concomitant]
     Active Substance: PERTUZUMAB
     Dates: end: 20210419

REACTIONS (1)
  - Post procedural infection [None]

NARRATIVE: CASE EVENT DATE: 20210527
